FAERS Safety Report 21456483 (Version 5)
Quarter: 2022Q4

REPORT INFORMATION
  Report Type: Report from Study
  Country: PL (occurrence: PL)
  Receive Date: 20221014
  Receipt Date: 20221212
  Transmission Date: 20230113
  Serious: Yes (Hospitalization, Other)
  Sender: FDA-Public Use
  Company Number: PL-BRISTOL-MYERS SQUIBB COMPANY-2022-119076

PATIENT
  Age: 78 Year
  Sex: Female
  Weight: 86 kg

DRUGS (30)
  1. LENALIDOMIDE [Suspect]
     Active Substance: LENALIDOMIDE
     Indication: Plasma cell myeloma
     Dosage: DOSE ALSO REPORTED AS 10 MG
     Route: 048
     Dates: start: 20220627, end: 20220919
  2. DEXAMETHASONE [Suspect]
     Active Substance: DEXAMETHASONE
     Indication: Plasma cell myeloma
     Route: 048
     Dates: start: 20220627, end: 20220919
  3. BORTEZOMIB [Suspect]
     Active Substance: BORTEZOMIB
     Indication: Plasma cell myeloma
     Route: 058
     Dates: start: 20220627, end: 20220915
  4. MEBEVERINE [Concomitant]
     Active Substance: MEBEVERINE
     Indication: Diverticulum intestinal
     Dosage: 200 MG (200 MG,1 IN 1 D)
     Dates: start: 20170101
  5. PANTOPRAZOLE [Concomitant]
     Active Substance: PANTOPRAZOLE
     Indication: Gastrointestinal disorder therapy
     Dosage: 20 MG 1 IN 1 DAY
     Route: 048
     Dates: start: 20170101, end: 20220928
  6. AMLODIPINE [Concomitant]
     Active Substance: AMLODIPINE BESYLATE
     Indication: Hypertension
     Dosage: 10 MG (10 MG,1 IN 1 D)
     Route: 048
     Dates: start: 20190101
  7. LOSARTAN [Concomitant]
     Active Substance: LOSARTAN
     Indication: Hypertension
     Dosage: 100 MG (100 MG,1 IN 1 D)
     Route: 048
     Dates: start: 20190101
  8. BISOPROLOL [Concomitant]
     Active Substance: BISOPROLOL
     Indication: Hypertension
     Dosage: 2.5 MG (2.5 MG,1 IN 1 D)
     Route: 048
     Dates: start: 20200101
  9. TRAMADOL [Concomitant]
     Active Substance: TRAMADOL
     Indication: Spinal osteoarthritis
     Dosage: 227.2727 MG (75 MG,1 IN 0.33 D)
     Dates: start: 20200101
  10. TRAMADOL [Concomitant]
     Active Substance: TRAMADOL
     Indication: Intervertebral disc disorder
  11. TRAMADOL [Concomitant]
     Active Substance: TRAMADOL
     Indication: Osteoarthritis
  12. TRAMADOL [Concomitant]
     Active Substance: TRAMADOL
     Indication: Thoracic vertebral fracture
  13. ACETAMINOPHEN [Concomitant]
     Active Substance: ACETAMINOPHEN
     Indication: Spinal osteoarthritis
     Dosage: 1969.697 MG (650 MG,1 IN 0.33 D)
     Route: 048
     Dates: start: 20200101
  14. ACETAMINOPHEN [Concomitant]
     Active Substance: ACETAMINOPHEN
     Indication: Intervertebral disc disorder
  15. ACETAMINOPHEN [Concomitant]
     Active Substance: ACETAMINOPHEN
     Indication: Thoracic vertebral fracture
  16. ACETAMINOPHEN [Concomitant]
     Active Substance: ACETAMINOPHEN
     Indication: Osteoarthritis
  17. VINPOCETINE [Concomitant]
     Active Substance: VINPOCETINE
     Indication: Intervertebral disc disorder
     Dosage: 20 MG (10 MG,1 IN 0.5 D)
     Route: 048
     Dates: start: 20200101
  18. TIZANIDINE [Concomitant]
     Active Substance: TIZANIDINE
     Indication: Spinal osteoarthritis
     Dosage: 4 MG (4 MG,1 IN 1 D)
     Route: 048
     Dates: start: 20220101
  19. B-CAL-DM [Concomitant]
     Indication: Osteoporosis
     Dosage: 2 DOSAGE FORMS (1 DOSAGE FORMS,1 IN 0.5 D)
     Route: 048
     Dates: start: 20220401
  20. B-CAL-DM [Concomitant]
     Indication: Thoracic vertebral fracture
  21. ACYCLOVIR [Concomitant]
     Active Substance: ACYCLOVIR
     Indication: Antiviral prophylaxis
     Dosage: 800 MG (400 MG,1 IN 0.5 D)
     Route: 048
     Dates: start: 20220627, end: 20220921
  22. FUROSEMIDE [Concomitant]
     Active Substance: FUROSEMIDE
     Indication: Oedema peripheral
     Dosage: 40 MG (40 MG,1 IN 1 D)
     Route: 048
     Dates: start: 20220725, end: 20220919
  23. FUROSEMIDE [Concomitant]
     Active Substance: FUROSEMIDE
     Indication: Oedema peripheral
  24. POTASSIUM CHLORIDE [Concomitant]
     Active Substance: POTASSIUM CHLORIDE
     Indication: Prophylaxis
     Dosage: 391 MG (391 MG,1 IN 1 D)
     Route: 048
     Dates: start: 20220725, end: 20220919
  25. NEUROVITAN [CYANOCOBALAMIN;PYRIDOXINE HYDROCHLORIDE;THIAMINE HYDROCHLO [Concomitant]
     Indication: Peripheral sensory neuropathy
     Dosage: 2 DOSAGE FORMS (1 DOSAGE FORMS,1 IN 0.5 D)
     Route: 048
     Dates: start: 20220808
  26. PREGABALIN [Concomitant]
     Active Substance: PREGABALIN
     Indication: Peripheral sensory neuropathy
     Dosage: 75 MG (75 MG,1 IN 1 D)
     Route: 048
     Dates: start: 20220912, end: 20220918
  27. PREGABALIN [Concomitant]
     Active Substance: PREGABALIN
     Dosage: 1 IN 0.5 DAY
     Route: 048
     Dates: start: 20220919
  28. THIOCTACID [THIOCTIC ACID] [Concomitant]
     Dosage: 600 MG (600 MG,1 IN 1 D)
     Route: 048
     Dates: start: 20220912
  29. RIFAXIMIN [Concomitant]
     Active Substance: RIFAXIMIN
     Indication: Gastrointestinal perforation
     Dosage: 800 MG (400 MG,1 IN 0.5 D)
     Route: 048
     Dates: start: 20220831, end: 20220907
  30. ZOLEDRONIC ACID [Concomitant]
     Active Substance: ZOLEDRONIC ACID
     Indication: Prophylaxis
     Dosage: ONCE
     Dates: start: 20220912, end: 20220912

REACTIONS (1)
  - Diverticulitis [Not Recovered/Not Resolved]

NARRATIVE: CASE EVENT DATE: 20220921
